FAERS Safety Report 4611516-7 (Version None)
Quarter: 2005Q1

REPORT INFORMATION
  Report Type: 
  Country: None (occurrence: None)
  Receive Date: 20050317
  Receipt Date: 20050221
  Transmission Date: 20050727
  Serious: Yes (Hospitalization)
  Sender: FDA-Public Use
  Company Number: JP-ROCHE-396619

PATIENT
  Age: 62 Year
  Sex: Female

DRUGS (7)
  1. TAMIFLU [Suspect]
     Indication: INFLUENZA
     Route: 048
     Dates: start: 20050216, end: 20050217
  2. ACETAMINOPHEN [Concomitant]
     Indication: DRUG USE FOR UNKNOWN INDICATION
     Dosage: DRUG NAME REPORTED AS ^COCARL^
     Route: 048
     Dates: start: 20050216, end: 20050217
  3. MUCOSTA [Concomitant]
     Route: 048
     Dates: start: 20050216, end: 20050217
  4. THYRADIN S [Concomitant]
     Route: 048
     Dates: start: 19850115, end: 20050217
  5. NORVASC [Concomitant]
     Route: 048
     Dates: start: 20020426, end: 20050217
  6. BLOPRESS [Concomitant]
     Route: 048
     Dates: start: 20030715, end: 20050217
  7. TENORMIN [Concomitant]
     Route: 048
     Dates: start: 19850115, end: 20050217

REACTIONS (9)
  - CYANOSIS [None]
  - DISSEMINATED INTRAVASCULAR COAGULATION [None]
  - DRUG ERUPTION [None]
  - ERYTHEMA MULTIFORME [None]
  - HYPOXIA [None]
  - INFECTION [None]
  - NEUTROPHIL PERCENTAGE INCREASED [None]
  - PULMONARY EMBOLISM [None]
  - WHITE BLOOD CELL COUNT INCREASED [None]
